FAERS Safety Report 14565455 (Version 5)
Quarter: 2018Q2

REPORT INFORMATION
  Report Type: Spontaneous
  Country: US (occurrence: US)
  Receive Date: 20180223
  Receipt Date: 20180423
  Transmission Date: 20180711
  Serious: No
  Sender: FDA-Public Use
  Company Number: US-TEVA-2018-US-861514

PATIENT
  Sex: Male

DRUGS (1)
  1. ZALEPLONC [Suspect]
     Active Substance: ZALEPLON
     Indication: INSOMNIA
     Dosage: 20 MILLIGRAM DAILY;
     Route: 048

REACTIONS (3)
  - Insomnia [Unknown]
  - Drug ineffective [Unknown]
  - Product quality issue [Unknown]
